FAERS Safety Report 7781870-6 (Version None)
Quarter: 2011Q3

REPORT INFORMATION
  Report Type: 
  Country: None (occurrence: None)
  Receive Date: 20110927
  Receipt Date: 20110913
  Transmission Date: 20111222
  Serious: No
  Sender: FDA-Public Use
  Company Number: US-B.I. PHARMACEUTICALS,INC./RIDGEFIELD-2011-BP-22077BP

PATIENT
  Sex: Female

DRUGS (5)
  1. AMIODARONE HCL [Concomitant]
     Indication: CARDIAC DISORDER
  2. PROZAC [Concomitant]
     Indication: DEPRESSION
  3. WELCHOL [Concomitant]
     Indication: CROHN'S DISEASE
  4. PRADAXA [Suspect]
     Indication: ATRIAL FIBRILLATION
     Dosage: 300 MG
     Dates: start: 20100803, end: 20100808
  5. APRISO [Concomitant]
     Indication: CROHN'S DISEASE

REACTIONS (3)
  - MALAISE [None]
  - NAUSEA [None]
  - OESOPHAGEAL SPASM [None]
